FAERS Safety Report 7262612-X (Version None)
Quarter: 2011Q1

REPORT INFORMATION
  Report Type: 
  Country: None (occurrence: None)
  Receive Date: 20110130
  Receipt Date: 20101129
  Transmission Date: 20110831
  Serious: No
  Sender: FDA-Public Use
  Company Number: US-ABBOTT-10P-163-0665229-00

PATIENT
  Sex: Female
  Weight: 66.284 kg

DRUGS (7)
  1. FLAGYL [Suspect]
     Indication: INFECTION
     Dates: start: 20100801
  2. ASCORBIC ACID [Concomitant]
     Indication: PRODUCT USED FOR UNKNOWN INDICATION
  3. IRON [Concomitant]
     Indication: PRODUCT USED FOR UNKNOWN INDICATION
     Route: 050
  4. HUMIRA [Suspect]
     Indication: CROHN'S DISEASE
     Dates: start: 20100816, end: 20100816
  5. PENTASA [Concomitant]
     Indication: CROHN'S DISEASE
  6. VITAMIN B-12 [Concomitant]
     Indication: PRODUCT USED FOR UNKNOWN INDICATION
  7. HUMIRA [Suspect]
     Dates: start: 20100930, end: 20100930

REACTIONS (8)
  - COUGH [None]
  - DYSPNOEA EXERTIONAL [None]
  - DYSPNOEA [None]
  - NAUSEA [None]
  - DIZZINESS [None]
  - HEART RATE INCREASED [None]
  - HYPOAESTHESIA [None]
  - WEIGHT INCREASED [None]
